FAERS Safety Report 4291362-7 (Version None)
Quarter: 2004Q1

REPORT INFORMATION
  Report Type: 
  Country: None (occurrence: None)
  Receive Date: 20040126
  Receipt Date: 20031029
  Transmission Date: 20041129
  Serious: No
  Sender: FDA-Public Use
  Company Number: USA031051137

PATIENT
  Age: 74 Year
  Sex: Female

DRUGS (3)
  1. FORTEO [Suspect]
     Indication: FRACTURE
     Dosage: 20UG/DAY
     Dates: start: 20030901, end: 20031020
  2. FOSAMAX [Concomitant]
  3. CALCIUM [Concomitant]

REACTIONS (4)
  - DIZZINESS [None]
  - DYSPEPSIA [None]
  - NAUSEA [None]
  - VOMITING [None]
